FAERS Safety Report 20781062 (Version 2)
Quarter: 2022Q3

REPORT INFORMATION
  Report Type: Other
  Country: JP (occurrence: JP)
  Receive Date: 20220504
  Receipt Date: 20220915
  Transmission Date: 20221027
  Serious: Yes (Other)
  Sender: FDA-Public Use
  Company Number: JP-CHUGAI-2022016498

PATIENT
  Age: 82 Year
  Sex: Male
  Weight: 45.3 kg

DRUGS (2)
  1. TECENTRIQ [Suspect]
     Active Substance: ATEZOLIZUMAB
     Indication: Hepatocellular carcinoma
     Dosage: 1200 MILLIGRAM, ONCE/3WEEKS
     Route: 041
  2. AVASTIN [Suspect]
     Active Substance: BEVACIZUMAB
     Indication: Hepatocellular carcinoma
     Dosage: 15 MILLIGRAM, ONCE/3WEEKS
     Route: 041

REACTIONS (5)
  - Myocarditis [Unknown]
  - Myositis [Unknown]
  - Dysphagia [Unknown]
  - Blood albumin decreased [Recovering/Resolving]
  - Pneumonia aspiration [Recovering/Resolving]
